FAERS Safety Report 6144904-0 (Version None)
Quarter: 2009Q2

REPORT INFORMATION
  Report Type: 
  Country: None (occurrence: None)
  Receive Date: 20090402
  Receipt Date: 20090402
  Transmission Date: 20091009
  Serious: Yes (Life-Threatening, Hospitalization)
  Sender: FDA-Public Use
  Company Number: None

PATIENT
  Age: 15 Year
  Sex: Female
  Weight: 58.9676 kg

DRUGS (2)
  1. INVEGA [Suspect]
     Indication: AFFECTIVE DISORDER
     Dosage: 1 PILL DAILY PO
     Route: 048
     Dates: start: 20080120, end: 20080202
  2. SEASONIQUE [Concomitant]

REACTIONS (6)
  - ERYTHEMA [None]
  - FLUID INTAKE REDUCED [None]
  - HYPOPHAGIA [None]
  - MUSCLE STRAIN [None]
  - THROMBOSIS [None]
  - WALKING AID USER [None]
